FAERS Safety Report 18679230 (Version 6)
Quarter: 2022Q3

REPORT INFORMATION
  Report Type: Spontaneous
  Country: US (occurrence: US)
  Receive Date: 20201229
  Receipt Date: 20220919
  Transmission Date: 20221027
  Serious: No
  Sender: FDA-Public Use
  Company Number: US-PFIZER INC-2020511540

PATIENT
  Age: 84 Year
  Sex: Male
  Weight: 90.26 kg

DRUGS (3)
  1. VYNDAMAX [Suspect]
     Active Substance: TAFAMIDIS
     Indication: Amyloidosis
     Dosage: 61 MG
     Dates: start: 2021
  2. VYNDAMAX [Suspect]
     Active Substance: TAFAMIDIS
     Indication: Amyloidosis senile
  3. VYNDAMAX [Suspect]
     Active Substance: TAFAMIDIS
     Indication: Cardiac disorder

REACTIONS (10)
  - Dyspnoea exertional [Unknown]
  - Fatigue [Unknown]
  - Insomnia [Unknown]
  - Decreased activity [Unknown]
  - Arthropathy [Unknown]
  - Mouth swelling [Unknown]
  - Parosmia [Unknown]
  - Dyspnoea [Unknown]
  - Product use issue [Unknown]
  - Off label use [Unknown]
